FAERS Safety Report 5888376-X (Version None)
Quarter: 2008Q3

REPORT INFORMATION
  Report Type: 
  Country: None (occurrence: None)
  Receive Date: 20080918
  Receipt Date: 20080915
  Transmission Date: 20090109
  Serious: Yes (Death, Hospitalization)
  Sender: FDA-Public Use
  Company Number: US-GILEAD-2008-0018000

PATIENT
  Sex: Male

DRUGS (1)
  1. LETAIRIS [Suspect]
     Indication: PULMONARY ARTERIAL HYPERTENSION
     Route: 048

REACTIONS (10)
  - ABDOMINAL PAIN UPPER [None]
  - DEATH [None]
  - DYSPNOEA [None]
  - EYE DISCHARGE [None]
  - HAEMATOCRIT DECREASED [None]
  - NASAL CONGESTION [None]
  - OCULAR HYPERAEMIA [None]
  - OEDEMA [None]
  - OXYGEN SATURATION DECREASED [None]
  - WEIGHT INCREASED [None]
